FAERS Safety Report 20802646 (Version 1)
Quarter: 2022Q2

REPORT INFORMATION
  Report Type: Spontaneous
  Country: US (occurrence: None)
  Receive Date: 20220509
  Receipt Date: 20220509
  Transmission Date: 20220721
  Serious: No
  Sender: FDA-Public Use
  Company Number: None

PATIENT
  Sex: Female

DRUGS (1)
  1. CUTAQUIG [Suspect]
     Active Substance: HUMAN IMMUNOGLOBULIN G
     Indication: Immunodeficiency common variable
     Dosage: 20GM EVERY 2 WEEKS SUBCUTANEOUS?
     Route: 058
     Dates: start: 20220220

REACTIONS (4)
  - Abdominal pain [None]
  - Diarrhoea [None]
  - Weight decreased [None]
  - Therapy interrupted [None]
